FAERS Safety Report 9181345 (Version 1)
Quarter: 2013Q1

REPORT INFORMATION
  Report Type: Spontaneous
  Country: US (occurrence: US)
  Receive Date: 20130322
  Receipt Date: 20130322
  Transmission Date: 20140127
  Serious: No
  Sender: FDA-Public Use
  Company Number: US-PFIZER INC-2013088565

PATIENT
  Age: 76 Year
  Sex: Male
  Weight: 69.39 kg

DRUGS (14)
  1. ALDACTONE [Suspect]
     Dosage: UNK, THREE TIMES A DAY
  2. REVLIMID [Suspect]
     Indication: PLASMA CELL MYELOMA
     Dosage: 25 MG, CYCLIC (EVERY 28 DAYS)
     Route: 048
     Dates: start: 200911
  3. REVLIMID [Suspect]
     Dosage: 10 MG, CYCLIC (EVERY 21 DAYS)
     Route: 048
     Dates: start: 201001, end: 201006
  4. REVLIMID [Suspect]
     Dosage: 15 MG, CYCLIC (DAILY 2 WEEKS ON, 1 WEEK OFF)
     Route: 048
     Dates: start: 201108
  5. VELCADE [Concomitant]
     Dosage: UNK
  6. DECADRON [Concomitant]
     Dosage: LOW DOSE
     Dates: start: 200912, end: 201006
  7. CALTRATE [Concomitant]
     Dosage: UNK
  8. ST MARY^S THISTLE [Concomitant]
     Dosage: UNK
  9. DOCUSATE SODIUM [Concomitant]
     Dosage: UNK, AS NEEDED
  10. TEMAZEPAM [Concomitant]
     Dosage: UNK
  11. ASPIRIN [Concomitant]
     Dosage: UNK
  12. AREDIA [Concomitant]
     Dosage: UNK
  13. FUROSEMIDE [Concomitant]
     Dosage: UNK
  14. MULTIVITAMINS [Concomitant]
     Dosage: UNK

REACTIONS (6)
  - Full blood count increased [Unknown]
  - Rash [Recovered/Resolved]
  - Pruritus [Recovered/Resolved]
  - White blood cell count decreased [Recovered/Resolved]
  - Myalgia [Recovered/Resolved]
  - Light chain analysis increased [Recovering/Resolving]
